FAERS Safety Report 20649082 (Version 1)
Quarter: 2022Q1

REPORT INFORMATION
  Report Type: Spontaneous
  Country: US (occurrence: None)
  Receive Date: 20220328
  Receipt Date: 20220328
  Transmission Date: 20220423
  Serious: No
  Sender: FDA-Public Use
  Company Number: None

PATIENT
  Sex: Male

DRUGS (1)
  1. NEUPOGEN [Suspect]
     Active Substance: FILGRASTIM
     Indication: Hodgkin^s disease
     Dosage: OTHER STRENGTH : 1ML/VL;?FREQUENCY : DAILY;?
     Route: 058
     Dates: start: 20220124

REACTIONS (1)
  - Hospitalisation [None]
